FAERS Safety Report 4987579-6 (Version None)
Quarter: 2006Q2

REPORT INFORMATION
  Report Type: 
  Country: None (occurrence: None)
  Receive Date: 20060501
  Receipt Date: 20060419
  Transmission Date: 20061013
  Serious: Yes (Other)
  Sender: FDA-Public Use
  Company Number: CA-NOVOPROD-252676

PATIENT
  Sex: Male

DRUGS (1)
  1. LEVEMIR [Suspect]
     Indication: DIABETES MELLITUS
     Dosage: UNKNOWN
     Route: 058
     Dates: start: 20050301

REACTIONS (1)
  - INTRAOCULAR PRESSURE INCREASED [None]
